FAERS Safety Report 10146056 (Version 3)
Quarter: 2014Q2

REPORT INFORMATION
  Report Type: Spontaneous
  Country: CA (occurrence: CA)
  Receive Date: 20140501
  Receipt Date: 20140527
  Transmission Date: 20141212
  Serious: Yes (Life-Threatening, Hospitalization)
  Sender: FDA-Public Use
  Company Number: CA-CELGENEUS-028-21880-14044848

PATIENT
  Age: 73 Year
  Sex: Female
  Weight: 63.4 kg

DRUGS (31)
  1. REVLIMID [Suspect]
     Indication: PLASMA CELL MYELOMA
     Dosage: 25 MILLIGRAM
     Route: 048
     Dates: start: 20130514, end: 20140419
  2. MLN9708\PLACEBO [Suspect]
     Indication: PLASMA CELL MYELOMA
     Dosage: 4 MILLIGRAM
     Route: 048
     Dates: start: 20130514, end: 20140417
  3. DEXAMETHASONE [Suspect]
     Indication: PLASMA CELL MYELOMA
     Dosage: 40 MILLIGRAM
     Route: 048
     Dates: start: 20130514, end: 20140426
  4. TRIAZIDE [Concomitant]
     Indication: HYPERTENSION
     Dosage: 50/25MG
     Route: 048
     Dates: start: 2003
  5. TYLENOL WITH CODEINE [Concomitant]
     Indication: FRACTURE
     Dosage: 300/30MG
     Route: 048
     Dates: start: 201303
  6. SYNTHROID [Concomitant]
     Indication: HYPOTHYROIDISM
     Dosage: 50 MICROGRAM
     Route: 048
     Dates: start: 2003
  7. VITAMIN D [Concomitant]
     Indication: ROUTINE HEALTH MAINTENANCE
     Dosage: 2000 IU (INTERNATIONAL UNIT)
     Route: 048
     Dates: start: 2003
  8. MULTIVITAMINS [Concomitant]
     Indication: ROUTINE HEALTH MAINTENANCE
     Dosage: 1 TABLET
     Route: 048
     Dates: start: 2003
  9. MULTIVITAMINS [Concomitant]
     Dosage: 1 TABLET
     Route: 048
     Dates: start: 20140419, end: 20140421
  10. B50 COMPLEX [Concomitant]
     Indication: ROUTINE HEALTH MAINTENANCE
     Dosage: 1 TABLET
     Route: 048
     Dates: start: 2003
  11. BABY ASPIRIN [Concomitant]
     Indication: THROMBOSIS PROPHYLAXIS
     Dosage: 81 MILLIGRAM
     Route: 048
     Dates: start: 20130514, end: 20140421
  12. VALTREX [Concomitant]
     Indication: HYPOAESTHESIA
     Dosage: 1500 MILLIGRAM
     Route: 048
     Dates: start: 20130514, end: 20130528
  13. VALTREX [Concomitant]
     Indication: HERPES ZOSTER
     Dosage: 500 MILLIGRAM
     Route: 048
     Dates: start: 20130529
  14. SENOKOT [Concomitant]
     Indication: CONSTIPATION
     Route: 048
     Dates: start: 2013
  15. TYLENOL [Concomitant]
     Indication: FRACTURE
     Route: 048
     Dates: start: 201303
  16. ONDANSETRON [Concomitant]
     Indication: NAUSEA
     Dosage: 24 MILLIGRAM
     Route: 048
     Dates: start: 20130522, end: 20130522
  17. SEPTRA DS [Concomitant]
     Indication: URINARY TRACT INFECTION
     Route: 065
     Dates: start: 20130711, end: 20130720
  18. AMOXICILLIN [Concomitant]
     Indication: TOOTH EXTRACTION
     Route: 065
     Dates: start: 20131030, end: 20131030
  19. MOXIFLOXACIN [Concomitant]
     Indication: COUGH
     Route: 065
     Dates: start: 20131123, end: 20131127
  20. LEVOTHYROXINE [Concomitant]
     Indication: PRODUCT USED FOR UNKNOWN INDICATION
     Dosage: 50 MICROGRAM
     Route: 048
     Dates: start: 20140419, end: 20140421
  21. VALACYCLOVIR [Concomitant]
     Indication: PRODUCT USED FOR UNKNOWN INDICATION
     Dosage: 500 MILLIGRAM
     Route: 048
     Dates: start: 20140419, end: 20140421
  22. ACYCLOVIR [Concomitant]
     Indication: PRODUCT USED FOR UNKNOWN INDICATION
     Route: 065
  23. VITAMIN K [Concomitant]
     Indication: PRODUCT USED FOR UNKNOWN INDICATION
     Route: 065
  24. PIPERACILLIN/TAZOBACTAM [Concomitant]
     Indication: PRODUCT USED FOR UNKNOWN INDICATION
     Dosage: 13500 MILLIGRAM
     Route: 041
     Dates: start: 20140418, end: 20140421
  25. HEPARIN [Concomitant]
     Indication: PRODUCT USED FOR UNKNOWN INDICATION
     Dosage: 10000 IU (INTERNATIONAL UNIT)
     Route: 058
     Dates: start: 20140419, end: 20140421
  26. RANITIDINE [Concomitant]
     Indication: PRODUCT USED FOR UNKNOWN INDICATION
     Dosage: 100 MILLIGRAM
     Route: 041
     Dates: start: 20140419, end: 20140421
  27. POTASSIUM CHLORIDE [Concomitant]
     Indication: PRODUCT USED FOR UNKNOWN INDICATION
     Dosage: 600 MILLIGRAM
     Route: 048
     Dates: start: 20140420, end: 20140421
  28. POTASSIUM CHLORIDE [Concomitant]
     Route: 041
     Dates: start: 20140420, end: 20140421
  29. INSULIN HUMULIN [Concomitant]
     Indication: PRODUCT USED FOR UNKNOWN INDICATION
     Dosage: SLIDING SCALE
     Route: 065
     Dates: start: 20140419, end: 20140421
  30. ACETAMINOPHEN [Concomitant]
     Indication: PRODUCT USED FOR UNKNOWN INDICATION
     Dosage: 500-1000 MG
     Route: 048
     Dates: start: 20140419, end: 20140421
  31. TRIAMTERENE + HYDROCHLOROTHIAZIDE [Concomitant]
     Indication: PRODUCT USED FOR UNKNOWN INDICATION
     Route: 048
     Dates: start: 20140420, end: 20140421

REACTIONS (2)
  - Sepsis [Recovered/Resolved with Sequelae]
  - Nephrolithiasis [Recovered/Resolved with Sequelae]
